FAERS Safety Report 9689946 (Version 1)
Quarter: 2013Q4

REPORT INFORMATION
  Report Type: Spontaneous
  Country: US (occurrence: US)
  Receive Date: 20131115
  Receipt Date: 20131115
  Transmission Date: 20140711
  Serious: No
  Sender: FDA-Public Use
  Company Number: US-PFIZER INC-2013322572

PATIENT
  Age: 61 Year
  Sex: Male

DRUGS (9)
  1. DEXTROMETHORPHAN HBR [Suspect]
     Dosage: UNK
  2. LISINOPRIL [Suspect]
     Dosage: UNK
  3. MORPHINE SULFATE [Suspect]
     Dosage: UNK
  4. SIMVASTATIN [Suspect]
     Dosage: UNK
  5. ZOLPIDEM TARTRATE [Suspect]
     Dosage: UNK
  6. DOXYLAMINE SUCCINATE [Suspect]
     Dosage: UNK
  7. PENTAZOCINE-NALOXONE HCL [Suspect]
     Dosage: UNK
  8. PSEUDOEPHEDRINE HYDROCHLORIDE [Suspect]
     Dosage: UNK
  9. TALWIN [Suspect]
     Dosage: UNK

REACTIONS (1)
  - Drug hypersensitivity [Unknown]
